FAERS Safety Report 11087936 (Version 1)
Quarter: 2015Q2

REPORT INFORMATION
  Report Type: Spontaneous
  Country: US (occurrence: US)
  Receive Date: 20150504
  Receipt Date: 20150504
  Transmission Date: 20150821
  Serious: No
  Sender: FDA-Public Use
  Company Number: US-TEVA-541742USA

PATIENT
  Age: 67 Year
  Sex: Male

DRUGS (5)
  1. BENDAMUSTINE [Concomitant]
     Active Substance: BENDAMUSTINE
  2. LANTUS [Concomitant]
     Active Substance: INSULIN GLARGINE
  3. RITUXIMAB [Concomitant]
     Active Substance: RITUXIMAB
  4. GRANIX [Suspect]
     Active Substance: TBO-FILGRASTIM
     Route: 058
  5. METFORMIN [Concomitant]
     Active Substance: METFORMIN HYDROCHLORIDE

REACTIONS (2)
  - Urticaria [Unknown]
  - Pruritus [Unknown]
